FAERS Safety Report 8459180-3 (Version None)
Quarter: 2012Q2

REPORT INFORMATION
  Report Type: 
  Country: None (occurrence: None)
  Receive Date: 20120622
  Receipt Date: 20120613
  Transmission Date: 20120825
  Serious: Yes (Hospitalization)
  Sender: FDA-Public Use
  Company Number: DE-ASTRAZENECA-2012SE40164

PATIENT
  Age: 78 Year
  Sex: Female

DRUGS (3)
  1. SEROQUEL XR [Suspect]
     Route: 048
     Dates: start: 20120315, end: 20120321
  2. MOVIPREP [Concomitant]
     Route: 048
     Dates: start: 20120312, end: 20120321
  3. SEROQUEL XR [Suspect]
     Indication: SCHIZOPHRENIA, PARANOID TYPE
     Route: 048
     Dates: start: 20120228, end: 20120314

REACTIONS (1)
  - DEEP VEIN THROMBOSIS [None]
